FAERS Safety Report 4871182-2 (Version None)
Quarter: 2005Q4

REPORT INFORMATION
  Report Type: 
  Country: None (occurrence: None)
  Receive Date: 20051229
  Receipt Date: 20051213
  Transmission Date: 20060501
  Serious: Yes (Hospitalization, Other)
  Sender: FDA-Public Use
  Company Number: USA0507103815

PATIENT
  Age: 88 Year
  Sex: Female
  Weight: 46.4 kg

DRUGS (7)
  1. FORTEO [Suspect]
     Indication: OSTEOPOROSIS
     Dates: start: 20050201, end: 20050801
  2. LISINOPRIL AND HYDROCHLOROTHIAZIDE [Concomitant]
  3. METOPROLOL SUCCINATE [Concomitant]
  4. CALCIUM CITRATE WITH VITAMIN D [Concomitant]
  5. MULTI-VITAMIN [Concomitant]
  6. VITAMIN C (VITAMIN C) [Concomitant]
  7. FORTEO [Concomitant]

REACTIONS (14)
  - ARTHRALGIA [None]
  - BALANCE DISORDER [None]
  - BLOOD SODIUM DECREASED [None]
  - BLOOD UREA NITROGEN/CREATININE RATIO INCREASED [None]
  - CHEST PAIN [None]
  - DEPRESSION [None]
  - FALL [None]
  - HEPATIC CYST [None]
  - HYPERLIPIDAEMIA [None]
  - IMPAIRED HEALING [None]
  - INSOMNIA [None]
  - NON-SMALL CELL LUNG CANCER [None]
  - PHARMACEUTICAL PRODUCT COMPLAINT [None]
  - WRIST FRACTURE [None]
